FAERS Safety Report 9748950 (Version 2)
Quarter: 2013Q4

REPORT INFORMATION
  Report Type: Spontaneous
  Country: US (occurrence: US)
  Receive Date: 20131212
  Receipt Date: 20131212
  Transmission Date: 20140711
  Serious: No
  Sender: FDA-Public Use
  Company Number: US-INCYTE CORPORATION-2013IN001080

PATIENT
  Age: 76 Year
  Sex: Female
  Weight: 54.88 kg

DRUGS (1)
  1. JAKAFI [Suspect]
     Dosage: 10 MG, QD
     Route: 048
     Dates: start: 20130225, end: 20130524

REACTIONS (8)
  - Fungal infection [Unknown]
  - Rash [Unknown]
  - Lethargy [Recovered/Resolved]
  - Asthenia [Unknown]
  - Epistaxis [Recovered/Resolved]
  - Drug intolerance [Recovered/Resolved]
  - Stomatitis [Unknown]
  - Contusion [Recovered/Resolved]
